FAERS Safety Report 12718532 (Version 1)
Quarter: 2016Q3

REPORT INFORMATION
  Report Type: Spontaneous
  Country: US (occurrence: US)
  Receive Date: 20160906
  Receipt Date: 20160906
  Transmission Date: 20161109
  Serious: Yes (Hospitalization)
  Sender: FDA-Public Use
  Company Number: US-ELI_LILLY_AND_COMPANY-US201608013291

PATIENT
  Age: 76 Year
  Sex: Female

DRUGS (3)
  1. HUMULIN R [Suspect]
     Active Substance: INSULIN HUMAN
     Indication: TYPE 2 DIABETES MELLITUS
     Dosage: 60 U, UNKNOWN
     Route: 065
     Dates: start: 2015
  2. LANTUS [Concomitant]
     Active Substance: INSULIN GLARGINE
     Dosage: 66 U, AT BEDTIME
  3. HUMALOG [Suspect]
     Active Substance: INSULIN LISPRO
     Indication: TYPE 2 DIABETES MELLITUS
     Dosage: 26 U, BEFORE MEALS AND SLIDING SCALE
     Route: 065
     Dates: start: 20160824

REACTIONS (13)
  - Malaise [Unknown]
  - Anal incontinence [Unknown]
  - Cardiac failure congestive [Unknown]
  - Depression [Unknown]
  - Dysstasia [Unknown]
  - Renal failure [Unknown]
  - Blood glucose increased [Unknown]
  - Abasia [Unknown]
  - Sleep disorder due to a general medical condition [Unknown]
  - Amnesia [Unknown]
  - Blood glucose increased [Unknown]
  - Blood glucose increased [Unknown]
  - Weight increased [Unknown]

NARRATIVE: CASE EVENT DATE: 201603
